FAERS Safety Report 12882741 (Version 1)
Quarter: 2016Q4

REPORT INFORMATION
  Report Type: Spontaneous
  Country: CN (occurrence: CN)
  Receive Date: 20161025
  Receipt Date: 20161025
  Transmission Date: 20170207
  Serious: Yes (Other)
  Sender: FDA-Public Use
  Company Number: CN-BAXTER-2016BAX052377

PATIENT
  Age: 47 Year
  Sex: Female
  Weight: 44 kg

DRUGS (12)
  1. 0.9% SODIUM CHLORIDE INJECTION [Suspect]
     Active Substance: SODIUM CHLORIDE
     Dosage: DOSE RE-INTRODUCED (SOLVENT FOR IMIPENEM CILASTATIN FOR INJECTION)
     Route: 041
  2. 0.9% SODIUM CHLORIDE INJECTION [Suspect]
     Active Substance: SODIUM CHLORIDE
     Dosage: SOLVENT FOR FOSFOMYCIN FOR INJECTION
     Route: 041
     Dates: start: 20160516, end: 20160521
  3. IMIPENEM AND CILASTATIN SODIUM [Suspect]
     Active Substance: CILASTATIN SODIUM\IMIPENEM
     Dosage: DOSE RE-INTRODUCED
     Route: 041
  4. TAI GE [Suspect]
     Active Substance: TIGECYCLINE
     Indication: ESCHERICHIA INFECTION
     Route: 041
     Dates: start: 20160516, end: 20160518
  5. 0.9% SODIUM CHLORIDE INJECTION [Suspect]
     Active Substance: SODIUM CHLORIDE
     Dosage: SOLVENT FOR TIGECYCLINE FOR INJECTION
     Route: 041
     Dates: start: 20160516, end: 20160518
  6. FOSFOMYCIN SODIUM [Suspect]
     Active Substance: FOSFOMYCIN SODIUM
     Dosage: DOSE RE-INTRODUCED
     Route: 041
  7. TAI GE [Suspect]
     Active Substance: TIGECYCLINE
     Dosage: DOSE RE-INTRODUCED
     Route: 041
  8. FOSFOMYCIN SODIUM [Suspect]
     Active Substance: FOSFOMYCIN SODIUM
     Indication: ESCHERICHIA INFECTION
     Route: 041
     Dates: start: 20160516, end: 20160521
  9. 0.9% SODIUM CHLORIDE INJECTION [Suspect]
     Active Substance: SODIUM CHLORIDE
     Indication: MEDICATION DILUTION
     Dosage: SOLVENT FOR IMIPENEM CILASTATIN FOR INJECTION
     Route: 041
     Dates: start: 20160516, end: 20160526
  10. 0.9% SODIUM CHLORIDE INJECTION [Suspect]
     Active Substance: SODIUM CHLORIDE
     Dosage: DOSE RE-INTRODUCED (SOLVENT FOR FOSFOMYCIN FOR INJECTION)
     Route: 041
  11. IMIPENEM AND CILASTATIN SODIUM [Suspect]
     Active Substance: CILASTATIN SODIUM\IMIPENEM
     Indication: ESCHERICHIA INFECTION
     Route: 041
     Dates: start: 20160516, end: 20160526
  12. 0.9% SODIUM CHLORIDE INJECTION [Suspect]
     Active Substance: SODIUM CHLORIDE
     Dosage: DOSE RE-INTRODUCED (SOLVENT FOR TIGECYCLINE FOR INJECTION)
     Route: 041

REACTIONS (2)
  - Rash papular [Recovered/Resolved]
  - Pruritus [Recovered/Resolved]

NARRATIVE: CASE EVENT DATE: 20160524
